FAERS Safety Report 24443529 (Version 2)
Quarter: 2024Q4

REPORT INFORMATION
  Report Type: Report from Study
  Country: US (occurrence: US)
  Receive Date: 20241016
  Receipt Date: 20241017
  Transmission Date: 20250115
  Serious: No
  Sender: ROCHE
  Company Number: US-ROCHE-2279573

PATIENT
  Age: 40 Year
  Sex: Female

DRUGS (10)
  1. RITUXAN [Suspect]
     Active Substance: RITUXIMAB
     Indication: Multiple sclerosis
     Dosage: ON DAY 1 AND 15
     Route: 041
  2. RITUXAN [Suspect]
     Active Substance: RITUXIMAB
     Dosage: FOR 2 DOSES, DATE OF TREATMENT:13/DEC/2021,11/JUN/2021,11/DEC/2020 DATE OF SERVICE:11/JUN/2020,12/JU
     Route: 041
  3. RITUXAN [Suspect]
     Active Substance: RITUXIMAB
     Dosage: TREATMENT DATE: 08/JUL/2023
     Route: 041
  4. ACETAMINOPHEN [Concomitant]
     Active Substance: ACETAMINOPHEN
  5. CEPHALEXIN [Concomitant]
     Active Substance: CEPHALEXIN
  6. CHOLECALCIFEROL [Concomitant]
     Active Substance: CHOLECALCIFEROL
  7. VOLTAREN [Concomitant]
     Active Substance: DICLOFENAC SODIUM
  8. GABAPENTIN [Concomitant]
     Active Substance: GABAPENTIN
  9. LIDOCAINE [Concomitant]
     Active Substance: LIDOCAINE
  10. OXYBUTYNIN [Concomitant]
     Active Substance: OXYBUTYNIN

REACTIONS (2)
  - Off label use [Unknown]
  - No adverse event [Unknown]
